FAERS Safety Report 22948739 (Version 2)
Quarter: 2023Q4

REPORT INFORMATION
  Report Type: Spontaneous
  Country: US (occurrence: US)
  Receive Date: 20230915
  Receipt Date: 20231003
  Transmission Date: 20240110
  Serious: No
  Sender: FDA-Public Use
  Company Number: US-SA-SAC20230913001052

PATIENT
  Age: 43 Year
  Sex: Female

DRUGS (8)
  1. DUPIXENT [Suspect]
     Active Substance: DUPILUMAB
     Indication: Dermatitis atopic
     Dosage: 300 MG, QOW
     Route: 058
     Dates: start: 20220901
  2. BETAMETHASONE DIPROPIONATE AUGMENTED [Concomitant]
     Active Substance: BETAMETHASONE DIPROPIONATE
     Indication: Eczema
     Dosage: UNK UNK, BID FOR 2 WEEKS MAX
     Dates: start: 20230127
  3. CLOBETASOL PROPIONATE [Concomitant]
     Active Substance: CLOBETASOL PROPIONATE
     Dosage: 118 ML, QD TO SCALP FOR 2 WEEKS THEN AS NEEDED
  4. SYNTHROID [Concomitant]
     Active Substance: LEVOTHYROXINE SODIUM
  5. BETAMETHASONE DIPROPIONATE AUGMENTED [Concomitant]
     Active Substance: BETAMETHASONE DIPROPIONATE
     Dosage: 60 ML, QD FOR 3-4 WEEKS AND AS NEEDED
     Dates: start: 20230127
  6. MUPIROCIN [Concomitant]
     Active Substance: MUPIROCIN
     Dosage: 22 G, BID
     Dates: start: 20220527
  7. AZELAIC ACID [Concomitant]
     Active Substance: AZELAIC ACID
     Dosage: 50 G, BID; THE ORDINARY, SEPHORA ONLINE O L TATE, MAK 10% CREAM OR SUSPENSION
     Dates: start: 20210818
  8. MOMETASONE FUROATE [Concomitant]
     Active Substance: MOMETASONE FUROATE
     Dosage: 15 G, BID APPLY TO AFFECTED AREA TWICE A DAY X1 WEEK AS NEEDED FLARES
     Dates: start: 20210818

REACTIONS (2)
  - Muscle injury [Unknown]
  - Myalgia [Unknown]

NARRATIVE: CASE EVENT DATE: 20220101
